FAERS Safety Report 9584092 (Version 1)
Quarter: 2013Q4

REPORT INFORMATION
  Report Type: Spontaneous
  Country: US (occurrence: US)
  Receive Date: 20131002
  Receipt Date: 20131002
  Transmission Date: 20140711
  Serious: No
  Sender: FDA-Public Use
  Company Number: US-AMGEN-USASP2013051185

PATIENT
  Age: 12 Year
  Sex: Male

DRUGS (4)
  1. ENBREL [Suspect]
     Indication: PRODUCT USED FOR UNKNOWN INDICATION
     Dosage: 25 MG, QWK
     Route: 058
  2. MULTIVITAMINS, PLAIN [Concomitant]
     Dosage: UNK
  3. ADVIL                              /00109201/ [Concomitant]
     Dosage: 200 MG, UNK
  4. TYLENOL CHILDREN^S [Concomitant]
     Dosage: UNK

REACTIONS (1)
  - Drug ineffective [Unknown]
